FAERS Safety Report 8371157-5 (Version None)
Quarter: 2012Q2

REPORT INFORMATION
  Report Type: 
  Country: None (occurrence: None)
  Receive Date: 20120518
  Receipt Date: 20120504
  Transmission Date: 20120825
  Serious: Yes (Disabling)
  Sender: FDA-Public Use
  Company Number: GB-ARROW GEN-2012-00443

PATIENT
  Age: 68 Year
  Sex: Male
  Weight: 81.647 kg

DRUGS (6)
  1. ASACOL [Concomitant]
     Indication: PRODUCT USED FOR UNKNOWN INDICATION
     Dosage: UNK UNK, UNKNOWN
     Route: 065
     Dates: start: 20110912
  2. MIRTAZAPINE [Suspect]
     Indication: DEPRESSION
     Dosage: 15 MG, DAILY, HALF A TABLET TO BE TAKEN AT NIGHT FOR 4 NIGHTS THEN 1 EACH NIGHT
     Route: 065
     Dates: start: 20111230, end: 20111231
  3. LOCERYL [Concomitant]
     Indication: PRODUCT USED FOR UNKNOWN INDICATION
     Dosage: UNK UNK, UNKNOWN
     Route: 065
     Dates: start: 20110706, end: 20111119
  4. CITALOPRAM HYDROBROMIDE [Concomitant]
     Indication: PRODUCT USED FOR UNKNOWN INDICATION
     Dosage: UNK UNK, UNKNOWN
     Route: 065
     Dates: start: 20110914, end: 20111223
  5. TIMOLOL MALEATE [Concomitant]
     Indication: PRODUCT USED FOR UNKNOWN INDICATION
     Dosage: UNK UNK, UNKNOWN
     Route: 065
     Dates: start: 20111220
  6. SIMVASTATIN [Concomitant]
     Indication: PRODUCT USED FOR UNKNOWN INDICATION
     Dosage: UNK UNK, UNKNOWN
     Route: 065
     Dates: start: 20111109

REACTIONS (6)
  - MUSCLE TWITCHING [None]
  - DIZZINESS [None]
  - HEADACHE [None]
  - POLLAKIURIA [None]
  - DYSURIA [None]
  - NOCTURIA [None]
